FAERS Safety Report 6814616-6 (Version None)
Quarter: 2010Q3

REPORT INFORMATION
  Report Type: 
  Country: None (occurrence: None)
  Receive Date: 20100702
  Receipt Date: 20100628
  Transmission Date: 20110219
  Serious: Yes (Other)
  Sender: FDA-Public Use
  Company Number: US-PFIZER INC-2010061563

PATIENT
  Sex: Female

DRUGS (2)
  1. GEODON [Suspect]
     Indication: SCHIZOPHRENIA, PARANOID TYPE
     Dosage: 120MG DAILY
     Route: 048
     Dates: start: 20070317, end: 20070511
  2. GEODON [Suspect]
     Dosage: 60 MG/DAY
     Route: 048
     Dates: start: 20070512

REACTIONS (2)
  - TARDIVE DYSKINESIA [None]
  - YAWNING [None]
